FAERS Safety Report 17892902 (Version 2)
Quarter: 2020Q3

REPORT INFORMATION
  Report Type: Report from Study
  Country: US (occurrence: US)
  Receive Date: 20200613
  Receipt Date: 20200928
  Transmission Date: 20201105
  Serious: No
  Sender: FDA-Public Use
  Company Number: NVSC2020US165493

PATIENT
  Sex: Female

DRUGS (3)
  1. XOLAIR [Suspect]
     Active Substance: OMALIZUMAB
     Indication: PRODUCT USED FOR UNKNOWN INDICATION
     Dosage: 300 MG (EVERY 2 WEEKS)
     Route: 058
     Dates: start: 20200519
  2. XOLAIR [Suspect]
     Active Substance: OMALIZUMAB
     Dosage: 300 MG, QW
     Route: 058
     Dates: end: 20200918
  3. MYCOPHENOLATE MOFETIL. [Suspect]
     Active Substance: MYCOPHENOLATE MOFETIL
     Indication: IDIOPATHIC URTICARIA
     Dosage: UNK
     Route: 065

REACTIONS (2)
  - Off label use [Unknown]
  - Intentional product use issue [Unknown]
